FAERS Safety Report 17572204 (Version 1)
Quarter: 2020Q1

REPORT INFORMATION
  Report Type: Spontaneous
  Country: FR (occurrence: FR)
  Receive Date: 20200323
  Receipt Date: 20200323
  Transmission Date: 20200409
  Serious: Yes (Other)
  Sender: FDA-Public Use
  Company Number: FR-TEVA-2020-FR-1206704

PATIENT
  Age: 70 Year
  Sex: Female

DRUGS (9)
  1. DIFFU K [Concomitant]
     Active Substance: POTASSIUM CHLORIDE
  2. ATORVASTATINE [Concomitant]
     Active Substance: ATORVASTATIN
  3. KARDEGIC [Concomitant]
     Active Substance: ASPIRIN DL-LYSINE
  4. METFORMINE [Suspect]
     Active Substance: METFORMIN HYDROCHLORIDE
     Indication: DIABETES MELLITUS
     Dosage: 3000 MG
     Route: 048
     Dates: end: 20181127
  5. JANUVIA [Concomitant]
     Active Substance: SITAGLIPTIN PHOSPHATE
  6. LASILIX 40 MG, COMPRIME SECABLE [Interacting]
     Active Substance: FUROSEMIDE
     Indication: HYPERTENSION
     Dosage: 40 MG
     Route: 048
     Dates: end: 20181127
  7. PANTOPRAZOLE [Concomitant]
     Active Substance: PANTOPRAZOLE
  8. BISOCE 1,25 MG, COMPRIME PELLICULE [Concomitant]
     Active Substance: BISOPROLOL FUMARATE
  9. BRILIQUE 90 MG, COMPRIME PELLICULE [Concomitant]
     Active Substance: TICAGRELOR

REACTIONS (4)
  - Overdose [Recovering/Resolving]
  - Lactic acidosis [Recovering/Resolving]
  - Renal tubular necrosis [Recovering/Resolving]
  - Drug interaction [Unknown]

NARRATIVE: CASE EVENT DATE: 20181127
